FAERS Safety Report 26117379 (Version 1)
Quarter: 2025Q4

REPORT INFORMATION
  Report Type: Spontaneous
  Country: EU (occurrence: EU)
  Receive Date: 20251203
  Receipt Date: 20251203
  Transmission Date: 20260117
  Serious: Yes (Death, Other)
  Sender: AMGEN
  Company Number: EU-AMGEN-FRASP2025236038

PATIENT

DRUGS (2)
  1. BEVACIZUMAB [Suspect]
     Active Substance: BEVACIZUMAB
     Indication: Peritoneal mesothelioma malignant
     Dosage: UNK
     Route: 065
  2. PEMETREXED [Concomitant]
     Active Substance: PEMETREXED

REACTIONS (19)
  - Procedural complication [Fatal]
  - Hepatic failure [Unknown]
  - Peritoneal mesothelioma malignant [Unknown]
  - Disseminated intravascular coagulation [Unknown]
  - Vasculitis [Unknown]
  - Cholangitis [Unknown]
  - Arthritis [Unknown]
  - Intestinal obstruction [Recovered/Resolved]
  - Tumour flare [Recovered/Resolved]
  - General physical health deterioration [Unknown]
  - Rash [Unknown]
  - Eosinophilia [Unknown]
  - Off label use [Unknown]
  - Ulcer haemorrhage [Unknown]
  - Therapy partial responder [Unknown]
  - Proteinuria [Unknown]
  - Hypertension [Unknown]
  - Arthralgia [Unknown]
  - Diarrhoea [Unknown]
